FAERS Safety Report 6480635-5 (Version None)
Quarter: 2009Q4

REPORT INFORMATION
  Report Type: 
  Country: None (occurrence: None)
  Receive Date: 20091208
  Receipt Date: 20091130
  Transmission Date: 20100525
  Serious: Yes (Other)
  Sender: FDA-Public Use
  Company Number: CH-PFIZER INC-2009304087

PATIENT
  Sex: Male

DRUGS (3)
  1. SOLU-MEDROL [Suspect]
  2. NOVABAN [Concomitant]
     Indication: VOMITING
  3. TAVEGYL [Concomitant]

REACTIONS (2)
  - DYSPNOEA [None]
  - HYPERSENSITIVITY [None]
